FAERS Safety Report 5494059-0 (Version None)
Quarter: 2007Q4

REPORT INFORMATION
  Report Type: 
  Country: None (occurrence: None)
  Receive Date: 20071023
  Receipt Date: 20071011
  Transmission Date: 20080405
  Serious: Yes (Life-Threatening, Disabling)
  Sender: FDA-Public Use
  Company Number: FR-PFIZER INC-2007086926

PATIENT
  Sex: Female

DRUGS (4)
  1. ADRIBLASTINE [Suspect]
     Indication: NEUROBLASTOMA
     Route: 042
     Dates: start: 19870101, end: 19880101
  2. ENDOXAN [Suspect]
     Indication: NEUROBLASTOMA
     Route: 042
     Dates: start: 19870101, end: 19880101
  3. ONCOVIN [Suspect]
     Indication: NEUROBLASTOMA
     Route: 042
     Dates: start: 19870101, end: 19880101
  4. DEPAKENE [Concomitant]
     Indication: EPILEPSY
     Route: 048
     Dates: start: 19960101, end: 19990101

REACTIONS (1)
  - MYOCARDIAL ISCHAEMIA [None]
